FAERS Safety Report 24071895 (Version 1)
Quarter: 2024Q3

REPORT INFORMATION
  Report Type: Report from Study
  Country: CL (occurrence: CL)
  Receive Date: 20240710
  Receipt Date: 20240710
  Transmission Date: 20241017
  Serious: No
  Sender: ROCHE
  Company Number: CL-ROCHE-3528509

PATIENT
  Age: 3 Year
  Sex: Female
  Weight: 13.2 kg

DRUGS (2)
  1. EVRYSDI [Suspect]
     Active Substance: RISDIPLAM
     Indication: Spinal muscular atrophy
     Dosage: STRENGTH: 60MG/80ML
     Route: 065
     Dates: start: 20230606
  2. EVRYSDI [Suspect]
     Active Substance: RISDIPLAM
     Dosage: STRENGTH: 60MG/80ML
     Route: 065
     Dates: start: 20230606

REACTIONS (2)
  - Bone development abnormal [Unknown]
  - Weight increased [Not Recovered/Not Resolved]

NARRATIVE: CASE EVENT DATE: 20240312
